FAERS Safety Report 6534952-0 (Version None)
Quarter: 2010Q1

REPORT INFORMATION
  Report Type: 
  Country: None (occurrence: None)
  Receive Date: 20100111
  Receipt Date: 20100111
  Transmission Date: 20100710
  Serious: Yes (Hospitalization)
  Sender: FDA-Public Use
  Company Number: None

PATIENT
  Sex: Male
  Weight: 83.5 kg

DRUGS (1)
  1. ZOMETA [Suspect]
     Dosage: 3 MG

REACTIONS (2)
  - CHEST PAIN [None]
  - DYSPNOEA [None]
